FAERS Safety Report 5015529-5 (Version None)
Quarter: 2006Q2

REPORT INFORMATION
  Report Type: 
  Country: None (occurrence: None)
  Receive Date: 20060601
  Receipt Date: 20060522
  Transmission Date: 20061013
  Serious: Yes (Life-Threatening)
  Sender: FDA-Public Use
  Company Number: FR-AVENTIS-200612914EU

PATIENT
  Age: 84 Year
  Sex: Male

DRUGS (7)
  1. LOGIRENE [Suspect]
     Indication: ILL-DEFINED DISORDER
     Dosage: DOSE: UNKNOWN DOSE
     Route: 048
     Dates: start: 20060330, end: 20060408
  2. COVERSYL [Suspect]
     Indication: ILL-DEFINED DISORDER
     Route: 048
     Dates: start: 20060330, end: 20060408
  3. GLUCOPHAGE [Concomitant]
  4. XATRAL [Concomitant]
  5. BUFLOMEDIL [Concomitant]
  6. DIOSMIN [Concomitant]
  7. FORLAX [Concomitant]

REACTIONS (14)
  - ASTHENIA [None]
  - ATRIAL FIBRILLATION [None]
  - ATRIOVENTRICULAR BLOCK COMPLETE [None]
  - BRADYCARDIA [None]
  - CARDIAC ARREST [None]
  - DEHYDRATION [None]
  - DIALYSIS [None]
  - DIARRHOEA [None]
  - FALL [None]
  - HYPERKALAEMIA [None]
  - HYPERTENSION [None]
  - RENAL FAILURE ACUTE [None]
  - SYNCOPE [None]
  - VENTRICULAR DYSFUNCTION [None]
